FAERS Safety Report 7299271-6 (Version None)
Quarter: 2010Q4

REPORT INFORMATION
  Report Type: 
  Country: None (occurrence: None)
  Receive Date: 20101223
  Receipt Date: 20100621
  Transmission Date: 20110411
  Serious: Yes (Hospitalization, Other)
  Sender: FDA-Public Use
  Company Number: 236554USA

PATIENT
  Age: 30 Year
  Sex: Female

DRUGS (2)
  1. PARAGARD T 380A [Suspect]
     Indication: CONTRACEPTION
     Dosage: I.U.
     Dates: start: 20090415, end: 20100527
  2. PRENATAL VITAMINS [Concomitant]

REACTIONS (3)
  - ABDOMINAL PAIN LOWER [None]
  - DRUG INEFFECTIVE [None]
  - RUPTURED ECTOPIC PREGNANCY [None]
